FAERS Safety Report 7885484-9 (Version None)
Quarter: 2011Q4

REPORT INFORMATION
  Report Type: 
  Country: None (occurrence: None)
  Receive Date: 20111102
  Receipt Date: 20111025
  Transmission Date: 20120403
  Serious: Yes (Other)
  Sender: FDA-Public Use
  Company Number: US-ASTRAZENECA-2011SE33826

PATIENT
  Age: 43 Year
  Sex: Female

DRUGS (3)
  1. ZOMIG-ZMT [Suspect]
     Route: 048
  2. NEXIUM [Suspect]
     Route: 048
  3. SEROQUEL [Concomitant]
     Route: 048

REACTIONS (4)
  - LOSS OF CONSCIOUSNESS [None]
  - HEADACHE [None]
  - DRUG DOSE OMISSION [None]
  - MIGRAINE [None]
